FAERS Safety Report 6455091-3 (Version None)
Quarter: 2009Q4

REPORT INFORMATION
  Report Type: 
  Country: None (occurrence: None)
  Receive Date: 20091118
  Receipt Date: 20091103
  Transmission Date: 20100525
  Serious: Yes (Death, Life-Threatening, Hospitalization, Other)
  Sender: FDA-Public Use
  Company Number: WAES 0901USA02839

PATIENT
  Age: 60 Year
  Sex: Male

DRUGS (15)
  1. CAP VORINOSTAT [Suspect]
     Indication: MULTIPLE MYELOMA
     Dosage: 400 MG/DAILY PO
     Route: 048
     Dates: start: 20090109, end: 20090302
  2. VELCADE [Suspect]
     Indication: MULTIPLE MYELOMA
     Dosage: 2.29 MG/ IV
     Route: 042
     Dates: start: 20090109, end: 20090227
  3. LACTULOSE [Concomitant]
  4. CLINDAMYCIN HCL [Concomitant]
  5. KONAKION [Concomitant]
  6. LITICAN [Concomitant]
  7. MOTILIUM [Concomitant]
  8. NEXIUM [Concomitant]
  9. PENSTAPHO [Concomitant]
  10. ROCEPHIN [Concomitant]
  11. STAPHYCID CAPSULES [Concomitant]
  12. ZYLORIC [Concomitant]
  13. BLOOD CELLS, RED [Concomitant]
  14. DOXYCYCLINE [Concomitant]
  15. PLATELETS [Concomitant]

REACTIONS (22)
  - ACIDOSIS [None]
  - ANURIA [None]
  - GENERAL PHYSICAL HEALTH DETERIORATION [None]
  - HAEMATOMA [None]
  - HAEMOGLOBIN DECREASED [None]
  - HAEMOPTYSIS [None]
  - HYPERTENSION [None]
  - IMMUNODEFICIENCY [None]
  - INAPPROPRIATE ANTIDIURETIC HORMONE SECRETION [None]
  - INTERNATIONAL NORMALISED RATIO INCREASED [None]
  - LACTIC ACIDOSIS [None]
  - NEUTROPHIL COUNT INCREASED [None]
  - OEDEMA PERIPHERAL [None]
  - PNEUMONIA [None]
  - REFUSAL OF TREATMENT BY PATIENT [None]
  - RENAL FAILURE ACUTE [None]
  - SEPTIC SHOCK [None]
  - SPUTUM CULTURE POSITIVE [None]
  - STAPHYLOCOCCAL INFECTION [None]
  - TACHYCARDIA [None]
  - THROMBOCYTOPENIA [None]
  - WEIGHT INCREASED [None]
